FAERS Safety Report 25219705 (Version 1)
Quarter: 2025Q2

REPORT INFORMATION
  Report Type: Spontaneous
  Country: US (occurrence: None)
  Receive Date: 20250418
  Receipt Date: 20250418
  Transmission Date: 20250716
  Serious: Yes (Other)
  Sender: FDA-CTU
  Company Number: None

PATIENT
  Age: 24 Year
  Sex: Female
  Weight: 42.3 kg

DRUGS (2)
  1. CEFDINIR [Suspect]
     Active Substance: CEFDINIR
     Indication: Urinary tract infection
     Dates: start: 20250408, end: 20250410
  2. CIPROFLOXACIN [Suspect]
     Active Substance: CIPROFLOXACIN
     Indication: Urinary tract infection
     Dates: start: 20250406, end: 20250408

REACTIONS (7)
  - Arthralgia [None]
  - Rash [None]
  - Swollen tongue [None]
  - Mouth swelling [None]
  - Lip exfoliation [None]
  - Oropharyngeal pain [None]
  - Pyrexia [None]

NARRATIVE: CASE EVENT DATE: 20250401
